FAERS Safety Report 7470661-1 (Version None)
Quarter: 2011Q2

REPORT INFORMATION
  Report Type: 
  Country: None (occurrence: None)
  Receive Date: 20110510
  Receipt Date: 20110504
  Transmission Date: 20111010
  Serious: Yes (Hospitalization)
  Sender: FDA-Public Use
  Company Number: US-B.I. PHARMACEUTICALS,INC./RIDGEFIELD-2011-BP-06174BP

PATIENT
  Age: 81 Year
  Sex: Male

DRUGS (11)
  1. HALCION [Concomitant]
  2. FUROSEMIDE [Concomitant]
     Dosage: 20 MG
     Route: 048
  3. INSULIN [Concomitant]
  4. MULTI-VITAMIN [Concomitant]
  5. COREG [Concomitant]
     Dosage: 50 MG
     Route: 048
  6. JANUVIA [Concomitant]
  7. ASPIRIN [Concomitant]
     Dosage: 81 MG
     Route: 048
  8. PRADAXA [Suspect]
     Indication: ATRIAL FIBRILLATION
     Dosage: 300 MG
     Route: 048
     Dates: start: 20110106, end: 20110203
  9. LISINOPRIL [Concomitant]
     Dosage: 20 MG
  10. PROPRANOLOL [Concomitant]
     Dosage: 40 MG
     Route: 048
  11. FEOSOL [Concomitant]

REACTIONS (1)
  - LOWER GASTROINTESTINAL HAEMORRHAGE [None]
